FAERS Safety Report 9920234 (Version 2)
Quarter: 2014Q3

REPORT INFORMATION
  Report Type: Spontaneous
  Country: US (occurrence: US)
  Receive Date: 20140224
  Receipt Date: 20140701
  Transmission Date: 20150326
  Serious: Yes (Death, Hospitalization)
  Sender: FDA-Public Use
  Company Number: US-B.I. PHARMACEUTICALS,INC./RIDGEFIELD-2014-BI-08060BP

PATIENT
  Age: 50 Year
  Sex: Male

DRUGS (3)
  1. PRADAXA [Suspect]
     Active Substance: DABIGATRAN ETEXILATE MESYLATE
     Indication: ATRIAL FIBRILLATION
     Route: 065
     Dates: start: 201106, end: 20130806
  2. METOPROLOL [Concomitant]
     Active Substance: METOPROLOL
     Route: 065
  3. ATENOLOL. [Concomitant]
     Active Substance: ATENOLOL
     Route: 065

REACTIONS (9)
  - Peritoneal haemorrhage [Fatal]
  - Haemorrhagic anaemia [Unknown]
  - Renal failure acute [Unknown]
  - Infusion site haemorrhage [Unknown]
  - Haemothorax [Fatal]
  - Shock haemorrhagic [Fatal]
  - Coagulopathy [Unknown]
  - Eye haemorrhage [Unknown]
  - Road traffic accident [Unknown]

NARRATIVE: CASE EVENT DATE: 20130806
